FAERS Safety Report 5024212-1 (Version None)
Quarter: 2006Q2

REPORT INFORMATION
  Report Type: 
  Country: None (occurrence: None)
  Receive Date: 20060607
  Receipt Date: 20060603
  Transmission Date: 20061013
  Serious: Yes (Death, Hospitalization)
  Sender: FDA-Public Use
  Company Number: 223210

PATIENT
  Age: 41 Year
  Sex: Female

DRUGS (5)
  1. AVASTIN [Suspect]
     Indication: COLORECTAL CANCER METASTATIC
     Dosage: 5 MG/KG, Q2W,
     Dates: start: 20051108, end: 20051206
  2. ERBITUX [Suspect]
     Indication: COLORECTAL CANCER METASTATIC
     Dosage: 250 MG/M2, 1/WEEK, SUBCUTANEOUS
     Route: 058
     Dates: start: 20051108, end: 20051206
  3. MORPHINE [Concomitant]
  4. OSYROL 100-LASIX (FUROSEMIDE, SPIRONOLACTONE) [Concomitant]
  5. PANTOPRAZOLE SODIUM [Concomitant]

REACTIONS (1)
  - GASTRITIS HAEMORRHAGIC [None]
